FAERS Safety Report 6076541-0 (Version None)
Quarter: 2009Q1

REPORT INFORMATION
  Report Type: 
  Country: None (occurrence: None)
  Receive Date: 20090209
  Receipt Date: 20090129
  Transmission Date: 20090719
  Serious: Yes (Other)
  Sender: FDA-Public Use
  Company Number: 2009JP000413

PATIENT
  Age: 66 Year
  Sex: Male

DRUGS (4)
  1. PROGRAF [Suspect]
     Indication: RHEUMATOID ARTHRITIS
     Dosage: 2 MG, ORAL
     Route: 048
     Dates: start: 20081101, end: 20081211
  2. PREDNISOLONE [Concomitant]
  3. CICLOSPORIN FORMULATION UNKNOWN [Concomitant]
  4. METHOTREXATE FORMULATION UNKNOWN [Concomitant]

REACTIONS (3)
  - DRUG INEFFECTIVE [None]
  - DRUG LEVEL DECREASED [None]
  - NEPHROTIC SYNDROME [None]
